FAERS Safety Report 5939212-4 (Version None)
Quarter: 2008Q4

REPORT INFORMATION
  Report Type: 
  Country: None (occurrence: None)
  Receive Date: 20081103
  Receipt Date: 20081021
  Transmission Date: 20090506
  Serious: Yes (Hospitalization, Other)
  Sender: FDA-Public Use
  Company Number: PHHO2008US12700

PATIENT
  Sex: Female
  Weight: 80.7 kg

DRUGS (5)
  1. ERL 080A ERL+TAB [Suspect]
     Indication: RENAL TRANSPLANT
     Dosage: 1440 MG, DAILY
     Route: 048
     Dates: start: 20080131, end: 20080808
  2. CYCLOSPORINE [Suspect]
     Indication: RENAL TRANSPLANT
     Dosage: 2 MG/ KG
     Dates: start: 20080617, end: 20080624
  3. CYCLOSPORINE [Suspect]
     Dosage: 100 MG, BID
     Dates: start: 20080624, end: 20080723
  4. CYCLOSPORINE [Suspect]
     Dosage: 75 MG, BID
     Dates: start: 20080724, end: 20080809
  5. PROGRAF [Suspect]

REACTIONS (6)
  - DIZZINESS [None]
  - MENIERE'S DISEASE [None]
  - NAUSEA [None]
  - THERAPEUTIC AGENT TOXICITY [None]
  - VERTIGO [None]
  - VOMITING [None]
